FAERS Safety Report 24253930 (Version 3)
Quarter: 2024Q4

REPORT INFORMATION
  Report Type: Spontaneous
  Country: JP (occurrence: JP)
  Receive Date: 20240827
  Receipt Date: 20241201
  Transmission Date: 20250114
  Serious: Yes (Life-Threatening, Hospitalization, Other)
  Sender: ALEXION PHARMACEUTICALS
  Company Number: 2024A191439

PATIENT
  Age: 62 Year
  Weight: 40 kg

DRUGS (116)
  1. TRUQAP [Suspect]
     Active Substance: CAPIVASERTIB
     Dosage: NUMBER OF SEPARATE DOSAGES UNKNOWN, 4 DAYS IN A ROW, FOLLOWED BY 3 DAYS OFF
  2. TRUQAP [Suspect]
     Active Substance: CAPIVASERTIB
     Dosage: NUMBER OF SEPARATE DOSAGES UNKNOWN, 4 DAYS IN A ROW, FOLLOWED BY 3 DAYS OFF
  3. TRUQAP [Suspect]
     Active Substance: CAPIVASERTIB
     Dosage: NUMBER OF SEPARATE DOSAGES UNKNOWN, 4 DAYS IN A ROW, FOLLOWED BY 3 DAYS OFF
  4. TRUQAP [Suspect]
     Active Substance: CAPIVASERTIB
     Dosage: NUMBER OF SEPARATE DOSAGES UNKNOWN, 4 DAYS IN A ROW, FOLLOWED BY 3 DAYS OFF
  5. FASLODEX [Suspect]
     Active Substance: FULVESTRANT
     Indication: Breast cancer
     Dosage: DOSE UNKNOWN
  6. FASLODEX [Suspect]
     Active Substance: FULVESTRANT
     Dosage: DOSE UNKNOWN
  7. FASLODEX [Suspect]
     Active Substance: FULVESTRANT
     Dosage: DOSE UNKNOWN
  8. FASLODEX [Suspect]
     Active Substance: FULVESTRANT
     Dosage: DOSE UNKNOWN
  9. FASLODEX [Suspect]
     Active Substance: FULVESTRANT
     Dosage: 2 - 4 WEEKS/TIME
  10. FASLODEX [Suspect]
     Active Substance: FULVESTRANT
     Dosage: 2 - 4 WEEKS/TIME
  11. FASLODEX [Suspect]
     Active Substance: FULVESTRANT
     Dosage: 2 - 4 WEEKS/TIME
  12. FASLODEX [Suspect]
     Active Substance: FULVESTRANT
     Dosage: 2 - 4 WEEKS/TIME
  13. PREGABALIN [Concomitant]
     Active Substance: PREGABALIN
     Indication: Hypoaesthesia
  14. PREGABALIN [Concomitant]
     Active Substance: PREGABALIN
     Indication: Pain
  15. PREGABALIN [Concomitant]
     Active Substance: PREGABALIN
  16. PREGABALIN [Concomitant]
     Active Substance: PREGABALIN
  17. TRAMADOL [Concomitant]
     Active Substance: TRAMADOL
     Indication: Hypoaesthesia
  18. TRAMADOL [Concomitant]
     Active Substance: TRAMADOL
     Indication: Pain
  19. TRAMADOL [Concomitant]
     Active Substance: TRAMADOL
  20. TRAMADOL [Concomitant]
     Active Substance: TRAMADOL
  21. REBAMIPIDE [Concomitant]
     Active Substance: REBAMIPIDE
     Dosage: DOSE UNKNOWN
  22. REBAMIPIDE [Concomitant]
     Active Substance: REBAMIPIDE
     Dosage: DOSE UNKNOWN
  23. REBAMIPIDE [Concomitant]
     Active Substance: REBAMIPIDE
     Dosage: DOSE UNKNOWN
  24. REBAMIPIDE [Concomitant]
     Active Substance: REBAMIPIDE
     Dosage: DOSE UNKNOWN
  25. METHYLCOBALAMIN [Concomitant]
     Active Substance: METHYLCOBALAMIN
     Indication: Hypoaesthesia
     Dosage: 500 MICROGRAM, TID
  26. METHYLCOBALAMIN [Concomitant]
     Active Substance: METHYLCOBALAMIN
     Indication: Pain
     Dosage: 500 MICROGRAM, TID
  27. METHYLCOBALAMIN [Concomitant]
     Active Substance: METHYLCOBALAMIN
     Dosage: 500 MICROGRAM, TID
  28. METHYLCOBALAMIN [Concomitant]
     Active Substance: METHYLCOBALAMIN
     Dosage: 500 MICROGRAM, TID
  29. MIYA-BM [Concomitant]
     Active Substance: CLOSTRIDIUM BUTYRICUM SPORES STRAIN M-55
  30. MIYA-BM [Concomitant]
     Active Substance: CLOSTRIDIUM BUTYRICUM SPORES STRAIN M-55
  31. MIYA-BM [Concomitant]
     Active Substance: CLOSTRIDIUM BUTYRICUM SPORES STRAIN M-55
  32. MIYA-BM [Concomitant]
     Active Substance: CLOSTRIDIUM BUTYRICUM SPORES STRAIN M-55
  33. VONOPRAZAN FUMARATE [Concomitant]
     Active Substance: VONOPRAZAN FUMARATE
     Indication: Gastric ulcer haemorrhage
  34. VONOPRAZAN FUMARATE [Concomitant]
     Active Substance: VONOPRAZAN FUMARATE
  35. VONOPRAZAN FUMARATE [Concomitant]
     Active Substance: VONOPRAZAN FUMARATE
  36. VONOPRAZAN FUMARATE [Concomitant]
     Active Substance: VONOPRAZAN FUMARATE
  37. MAGNESIUM OXIDE [Concomitant]
     Active Substance: MAGNESIUM OXIDE
     Indication: Constipation
  38. MAGNESIUM OXIDE [Concomitant]
     Active Substance: MAGNESIUM OXIDE
  39. MAGNESIUM OXIDE [Concomitant]
     Active Substance: MAGNESIUM OXIDE
  40. MAGNESIUM OXIDE [Concomitant]
     Active Substance: MAGNESIUM OXIDE
  41. DENOSUMAB [Concomitant]
     Active Substance: DENOSUMAB
     Indication: Breast cancer
     Dosage: DOSE UNKNOWN
  42. DENOSUMAB [Concomitant]
     Active Substance: DENOSUMAB
     Dosage: DOSE UNKNOWN
     Route: 065
  43. ABEMACICLIB [Concomitant]
     Active Substance: ABEMACICLIB
     Dosage: NUMBER OF SEPARATE DOSAGES UNKNOWN
     Route: 065
  44. ABEMACICLIB [Concomitant]
     Active Substance: ABEMACICLIB
     Dosage: NUMBER OF SEPARATE DOSAGES UNKNOWN
  45. ABEMACICLIB [Concomitant]
     Active Substance: ABEMACICLIB
     Dosage: NUMBER OF SEPARATE DOSAGES UNKNOWN
     Route: 065
  46. ABEMACICLIB [Concomitant]
     Active Substance: ABEMACICLIB
     Dosage: NUMBER OF SEPARATE DOSAGES UNKNOWN
  47. EPIRUBICIN HYDROCHLORIDE [Concomitant]
     Active Substance: EPIRUBICIN HYDROCHLORIDE
     Dosage: DOSE UNKNOWN, 90% DOSE
     Route: 065
  48. EPIRUBICIN HYDROCHLORIDE [Concomitant]
     Active Substance: EPIRUBICIN HYDROCHLORIDE
     Dosage: DOSE UNKNOWN, 90% DOSE
  49. EPIRUBICIN HYDROCHLORIDE [Concomitant]
     Active Substance: EPIRUBICIN HYDROCHLORIDE
     Dosage: DOSE UNKNOWN, 90% DOSE
     Route: 065
  50. EPIRUBICIN HYDROCHLORIDE [Concomitant]
     Active Substance: EPIRUBICIN HYDROCHLORIDE
     Dosage: DOSE UNKNOWN, 90% DOSE
  51. EPIRUBICIN HYDROCHLORIDE [Concomitant]
     Active Substance: EPIRUBICIN HYDROCHLORIDE
     Dosage: DOSE UNKNOWN, 90% DOSE
     Route: 065
  52. EPIRUBICIN HYDROCHLORIDE [Concomitant]
     Active Substance: EPIRUBICIN HYDROCHLORIDE
     Dosage: DOSE UNKNOWN, 90% DOSE
  53. EPIRUBICIN HYDROCHLORIDE [Concomitant]
     Active Substance: EPIRUBICIN HYDROCHLORIDE
     Dosage: DOSE UNKNOWN, 90% DOSE
     Route: 065
  54. EPIRUBICIN HYDROCHLORIDE [Concomitant]
     Active Substance: EPIRUBICIN HYDROCHLORIDE
     Dosage: DOSE UNKNOWN, 90% DOSE
  55. EPIRUBICIN HYDROCHLORIDE [Concomitant]
     Active Substance: EPIRUBICIN HYDROCHLORIDE
     Dosage: DOSE UNKNOWN, 100% DOSE
     Route: 065
  56. EPIRUBICIN HYDROCHLORIDE [Concomitant]
     Active Substance: EPIRUBICIN HYDROCHLORIDE
     Dosage: DOSE UNKNOWN, 100% DOSE
  57. EPIRUBICIN HYDROCHLORIDE [Concomitant]
     Active Substance: EPIRUBICIN HYDROCHLORIDE
     Dosage: DOSE UNKNOWN, 100% DOSE
     Route: 065
  58. EPIRUBICIN HYDROCHLORIDE [Concomitant]
     Active Substance: EPIRUBICIN HYDROCHLORIDE
     Dosage: DOSE UNKNOWN, 100% DOSE
  59. CYCLOPHOSPHAMIDE [Concomitant]
     Active Substance: CYCLOPHOSPHAMIDE
     Dosage: DOSE UNKNOWN, 90% DOSE
     Route: 065
  60. CYCLOPHOSPHAMIDE [Concomitant]
     Active Substance: CYCLOPHOSPHAMIDE
     Dosage: DOSE UNKNOWN, 90% DOSE
  61. CYCLOPHOSPHAMIDE [Concomitant]
     Active Substance: CYCLOPHOSPHAMIDE
     Dosage: DOSE UNKNOWN, 90% DOSE
     Route: 065
  62. CYCLOPHOSPHAMIDE [Concomitant]
     Active Substance: CYCLOPHOSPHAMIDE
     Dosage: DOSE UNKNOWN, 90% DOSE
  63. CYCLOPHOSPHAMIDE [Concomitant]
     Active Substance: CYCLOPHOSPHAMIDE
     Dosage: DOSE UNKNOWN, 100% DOSE
     Route: 065
  64. CYCLOPHOSPHAMIDE [Concomitant]
     Active Substance: CYCLOPHOSPHAMIDE
     Dosage: DOSE UNKNOWN, 100% DOSE
  65. PEGFILGRASTIM [Concomitant]
     Active Substance: PEGFILGRASTIM
     Dosage: DOSE UNKNOWN
     Route: 065
  66. PEGFILGRASTIM [Concomitant]
     Active Substance: PEGFILGRASTIM
     Dosage: DOSE UNKNOWN
  67. PEGFILGRASTIM [Concomitant]
     Active Substance: PEGFILGRASTIM
     Dosage: DOSE UNKNOWN
     Route: 065
  68. PEGFILGRASTIM [Concomitant]
     Active Substance: PEGFILGRASTIM
     Dosage: DOSE UNKNOWN
  69. DENOSUMAB [Concomitant]
     Active Substance: DENOSUMAB
     Dosage: DOSE UNKNOWN
     Route: 065
  70. DENOSUMAB [Concomitant]
     Active Substance: DENOSUMAB
     Dosage: DOSE UNKNOWN
  71. DENOSUMAB [Concomitant]
     Active Substance: DENOSUMAB
     Dosage: DOSE UNKNOWN
     Route: 065
  72. DENOSUMAB [Concomitant]
     Active Substance: DENOSUMAB
     Dosage: DOSE UNKNOWN
  73. DENOSUMAB [Concomitant]
     Active Substance: DENOSUMAB
     Dosage: DOSE UNKNOWN
     Route: 065
  74. DENOSUMAB [Concomitant]
     Active Substance: DENOSUMAB
     Dosage: DOSE UNKNOWN
  75. DENOSUMAB [Concomitant]
     Active Substance: DENOSUMAB
     Dosage: DOSE UNKNOWN
     Route: 065
  76. DENOSUMAB [Concomitant]
     Active Substance: DENOSUMAB
     Dosage: DOSE UNKNOWN
  77. ENHERTU [Concomitant]
     Active Substance: FAM-TRASTUZUMAB DERUXTECAN-NXKI
     Dosage: DOSE UNKNOWN
     Route: 065
  78. ENHERTU [Concomitant]
     Active Substance: FAM-TRASTUZUMAB DERUXTECAN-NXKI
     Dosage: DOSE UNKNOWN
  79. ENHERTU [Concomitant]
     Active Substance: FAM-TRASTUZUMAB DERUXTECAN-NXKI
     Dosage: DOSE UNKNOWN
     Route: 065
  80. ENHERTU [Concomitant]
     Active Substance: FAM-TRASTUZUMAB DERUXTECAN-NXKI
     Dosage: DOSE UNKNOWN
  81. VERZENIO [Concomitant]
     Active Substance: ABEMACICLIB
     Indication: Breast cancer
     Dosage: DOSE UNKNOWN
  82. VERZENIO [Concomitant]
     Active Substance: ABEMACICLIB
     Dosage: DOSE UNKNOWN
     Route: 065
  83. EXEMESTANE [Concomitant]
     Active Substance: EXEMESTANE
     Indication: Breast cancer
     Dosage: DOSE UNKNOWN
  84. EXEMESTANE [Concomitant]
     Active Substance: EXEMESTANE
     Dosage: DOSE UNKNOWN
     Route: 065
  85. AFINITOR [Concomitant]
     Active Substance: EVEROLIMUS
     Indication: Breast cancer
     Dosage: DOSE UNKNOWN
     Route: 065
  86. AFINITOR [Concomitant]
     Active Substance: EVEROLIMUS
     Dosage: DOSE UNKNOWN
  87. AFINITOR [Concomitant]
     Active Substance: EVEROLIMUS
     Dosage: DOSE UNKNOWN
     Route: 065
  88. AFINITOR [Concomitant]
     Active Substance: EVEROLIMUS
     Dosage: DOSE UNKNOWN
  89. TRUQAP [Suspect]
     Active Substance: CAPIVASERTIB
     Dosage: 4 DAYS IN A ROW, FOLLOWED BY 3 DAYS OFF
  90. TRUQAP [Suspect]
     Active Substance: CAPIVASERTIB
     Dosage: 4 DAYS IN A ROW, FOLLOWED BY 3 DAYS OFF
  91. TRUQAP [Suspect]
     Active Substance: CAPIVASERTIB
     Dosage: 4 DAYS IN A ROW, FOLLOWED BY 3 DAYS OFF
  92. TRUQAP [Suspect]
     Active Substance: CAPIVASERTIB
     Dosage: 4 DAYS IN A ROW, FOLLOWED BY 3 DAYS OFF
  93. TRUQAP [Suspect]
     Active Substance: CAPIVASERTIB
     Dosage: DOSE UNKNOWN, 4 DAYS IN A ROW, FOLLOWED BY 3 DAYS OFF
  94. TRUQAP [Suspect]
     Active Substance: CAPIVASERTIB
     Dosage: DOSE UNKNOWN, 4 DAYS IN A ROW, FOLLOWED BY 3 DAYS OFF
  95. TRUQAP [Suspect]
     Active Substance: CAPIVASERTIB
     Dosage: DOSE UNKNOWN, 4 DAYS IN A ROW, FOLLOWED BY 3 DAYS OFF
  96. TRUQAP [Suspect]
     Active Substance: CAPIVASERTIB
     Dosage: DOSE UNKNOWN, 4 DAYS IN A ROW, FOLLOWED BY 3 DAYS OFF
  97. TRUQAP [Suspect]
     Active Substance: CAPIVASERTIB
     Dosage: DOSE UNKNOWN, 4 DAYS IN A ROW, FOLLOWED BY 3 DAYS OFF
  98. TRUQAP [Suspect]
     Active Substance: CAPIVASERTIB
     Dosage: DOSE UNKNOWN, 4 DAYS IN A ROW, FOLLOWED BY 3 DAYS OFF
  99. TRUQAP [Suspect]
     Active Substance: CAPIVASERTIB
     Dosage: DOSE UNKNOWN, 4 DAYS IN A ROW, FOLLOWED BY 3 DAYS OFF
  100. TRUQAP [Suspect]
     Active Substance: CAPIVASERTIB
     Dosage: DOSE UNKNOWN, 4 DAYS IN A ROW, FOLLOWED BY 3 DAYS OFF
  101. TRUQAP [Suspect]
     Active Substance: CAPIVASERTIB
     Dosage: NUMBER OF SEPARATE DOSAGES UNKNOWN, 4 DAYS IN A ROW, FOLLOWED BY 3 DAYS OFF
  102. TRUQAP [Suspect]
     Active Substance: CAPIVASERTIB
     Dosage: NUMBER OF SEPARATE DOSAGES UNKNOWN, 4 DAYS IN A ROW, FOLLOWED BY 3 DAYS OFF
  103. TRUQAP [Suspect]
     Active Substance: CAPIVASERTIB
     Dosage: NUMBER OF SEPARATE DOSAGES UNKNOWN, 4 DAYS IN A ROW, FOLLOWED BY 3 DAYS OFF
  104. TRUQAP [Suspect]
     Active Substance: CAPIVASERTIB
     Dosage: NUMBER OF SEPARATE DOSAGES UNKNOWN, 4 DAYS IN A ROW, FOLLOWED BY 3 DAYS OFF
  105. DENOSUMAB [Concomitant]
     Active Substance: DENOSUMAB
     Indication: Breast cancer
     Dosage: DOSE UNKNOWN
  106. DENOSUMAB [Concomitant]
     Active Substance: DENOSUMAB
     Dosage: DOSE UNKNOWN
     Route: 065
  107. CYCLOPHOSPHAMIDE [Concomitant]
     Active Substance: CYCLOPHOSPHAMIDE
     Dosage: DOSE UNKNOWN, 90% DOSE
     Route: 065
  108. CYCLOPHOSPHAMIDE [Concomitant]
     Active Substance: CYCLOPHOSPHAMIDE
     Dosage: DOSE UNKNOWN, 90% DOSE
  109. CYCLOPHOSPHAMIDE [Concomitant]
     Active Substance: CYCLOPHOSPHAMIDE
     Dosage: DOSE UNKNOWN, 90% DOSE
     Route: 065
  110. CYCLOPHOSPHAMIDE [Concomitant]
     Active Substance: CYCLOPHOSPHAMIDE
     Dosage: DOSE UNKNOWN, 90% DOSE
  111. CYCLOPHOSPHAMIDE [Concomitant]
     Active Substance: CYCLOPHOSPHAMIDE
     Dosage: DOSE UNKNOWN, 100% DOSE
     Route: 065
  112. CYCLOPHOSPHAMIDE [Concomitant]
     Active Substance: CYCLOPHOSPHAMIDE
     Dosage: DOSE UNKNOWN, 100% DOSE
  113. PEGFILGRASTIM [Concomitant]
     Active Substance: PEGFILGRASTIM
     Dosage: DOSE UNKNOWN
     Route: 065
  114. PEGFILGRASTIM [Concomitant]
     Active Substance: PEGFILGRASTIM
     Dosage: DOSE UNKNOWN
  115. PEGFILGRASTIM [Concomitant]
     Active Substance: PEGFILGRASTIM
     Dosage: DOSE UNKNOWN
     Route: 065
  116. PEGFILGRASTIM [Concomitant]
     Active Substance: PEGFILGRASTIM
     Dosage: DOSE UNKNOWN

REACTIONS (5)
  - Hyperglycaemic hyperosmolar nonketotic syndrome [Recovering/Resolving]
  - Diabetic ketoacidosis [Recovering/Resolving]
  - Rash [Recovered/Resolved]
  - Pyrexia [Unknown]
  - Hyperglycaemia [Recovering/Resolving]
